FAERS Safety Report 12388085 (Version 3)
Quarter: 2016Q3

REPORT INFORMATION
  Report Type: Spontaneous
  Country: US (occurrence: US)
  Receive Date: 20160520
  Receipt Date: 20160715
  Transmission Date: 20161109
  Serious: Yes (Hospitalization)
  Sender: FDA-Public Use
  Company Number: US-BRISTOL-MYERS SQUIBB COMPANY-BMS-2016-038380

PATIENT
  Age: 78 Year
  Sex: Male

DRUGS (8)
  1. YERVOY [Suspect]
     Active Substance: IPILIMUMAB
     Indication: MALIGNANT MELANOMA
     Dosage: 231 MG, UNK
     Route: 042
     Dates: start: 20160328
  2. OPDIVO [Suspect]
     Active Substance: NIVOLUMAB
     Dosage: 78 MG, UNK
     Route: 042
     Dates: start: 20160509
  3. OPDIVO [Suspect]
     Active Substance: NIVOLUMAB
     Indication: MALIGNANT MELANOMA
     Dosage: 78 MG, UNK
     Route: 042
     Dates: start: 20160328
  4. OPDIVO [Suspect]
     Active Substance: NIVOLUMAB
     Dosage: 78 UNK, UNK
     Route: 042
     Dates: start: 20160418
  5. OPDIVO [Suspect]
     Active Substance: NIVOLUMAB
     Indication: MALIGNANT MELANOMA
     Dosage: 78 MG, Q3WK
     Route: 042
     Dates: start: 20160307
  6. YERVOY [Suspect]
     Active Substance: IPILIMUMAB
     Dosage: 231 MG, UNK
     Route: 042
     Dates: start: 20160418
  7. YERVOY [Suspect]
     Active Substance: IPILIMUMAB
     Dosage: 231 MG, UNK
     Route: 042
     Dates: start: 20160509
  8. YERVOY [Suspect]
     Active Substance: IPILIMUMAB
     Indication: MALIGNANT MELANOMA
     Dosage: 231 MG, Q3WK
     Route: 042
     Dates: start: 20160307

REACTIONS (1)
  - Diarrhoea [Recovering/Resolving]

NARRATIVE: CASE EVENT DATE: 20160429
